FAERS Safety Report 23691131 (Version 1)
Quarter: 2024Q2

REPORT INFORMATION
  Report Type: Spontaneous
  Country: GB (occurrence: GB)
  Receive Date: 20240401
  Receipt Date: 20240401
  Transmission Date: 20240716
  Serious: Yes (Death, Other)
  Sender: FDA-Public Use
  Company Number: None

PATIENT
  Age: 87 Year
  Sex: Male

DRUGS (14)
  1. APIXABAN [Suspect]
     Active Substance: APIXABAN
     Indication: Product used for unknown indication
     Route: 048
  2. BECLOMETHASONE\FORMOTEROL [Concomitant]
     Active Substance: BECLOMETHASONE\FORMOTEROL
     Dosage: TWO PUFFS TO BE INHALED TWICE A DAY AND 2 EXTRA PUFFS WHEN WHEEZY OR SHORT OF BREATH
     Route: 055
  3. ALBUTEROL [Concomitant]
     Active Substance: ALBUTEROL
     Dosage: ONE OR TWO PUFFS TO BE INHALED FOUR TIMES A DAY WHEN REQUIRED
     Route: 055
  4. HYALURONATE SODIUM [Concomitant]
     Active Substance: HYALURONATE SODIUM
     Dosage: 4-6 TIMES DAILY
  5. OXYCODONE HYDROCHLORIDE [Concomitant]
     Active Substance: OXYCODONE HYDROCHLORIDE
     Route: 048
  6. ACETYLCYSTEINE [Concomitant]
     Active Substance: ACETYLCYSTEINE
     Dosage: IN THE MORNING
     Route: 048
  7. OXYCODONE [Concomitant]
     Active Substance: OXYCODONE\OXYCODONE HYDROCHLORIDE
     Dosage: 5MG/5ML ORAL SOLUTION SUGAR FREE - 1.25MG EVERY FOUR HOURS AS REQUIRED FOR PAIN
     Route: 048
  8. OMEPRAZOLE [Concomitant]
     Active Substance: OMEPRAZOLE
     Route: 048
  9. SENNA [Concomitant]
     Active Substance: SENNA LEAF\SENNOSIDES\SENNOSIDES A AND B
     Dosage: AT NIGHT
  10. LORAZEPAM [Concomitant]
     Active Substance: LORAZEPAM
     Dosage: HALF OR ONE TABLET AS REQUIRED SUBLINGUALLY - MAXIMUM 4MG A DAY
     Route: 060
  11. BUMETANIDE [Concomitant]
     Active Substance: BUMETANIDE
     Dosage: EACH MORNING AND ONE TO BE TAKEN AT LUNCHTIME
     Route: 048
  12. ALBUTEROL [Concomitant]
     Active Substance: ALBUTEROL
     Dosage: 5MG/2.5ML, FOUR TIMES A DAY OR WHEN REQUIRED
     Route: 048
  13. GLYCERIN [Concomitant]
     Active Substance: GLYCERIN
     Indication: Constipation
     Route: 054
  14. AMILORIDE [Concomitant]
     Active Substance: AMILORIDE
     Route: 048

REACTIONS (2)
  - Fall [Not Recovered/Not Resolved]
  - Head injury [Fatal]
